FAERS Safety Report 8645346 (Version 4)
Quarter: 2013Q2

REPORT INFORMATION
  Report Type: Spontaneous
  Country: BR (occurrence: BR)
  Receive Date: 20120702
  Receipt Date: 20130429
  Transmission Date: 20140414
  Serious: Yes (Death, Hospitalization, Other)
  Sender: FDA-Public Use
  Company Number: BR-AMGEN-BRASP2012038859

PATIENT
  Age: 69 Year
  Sex: Male

DRUGS (3)
  1. ENBREL [Suspect]
     Indication: RHEUMATOID ARTHRITIS
     Dosage: 25 MG, 2X/WEEK
     Route: 058
     Dates: start: 20101118
  2. METHOTREXATE [Concomitant]
     Dosage: 15 MG, WEEKLY
     Route: 048
  3. FOLIC ACID [Concomitant]
     Dosage: 10 MG, WEEKLY

REACTIONS (10)
  - Septic shock [Fatal]
  - Bacterial infection [Unknown]
  - Bronchopneumonia [Unknown]
  - Cardio-respiratory arrest [Fatal]
  - Acute respiratory failure [Unknown]
  - Haemodynamic instability [Unknown]
  - Cellulitis [Fatal]
  - Immunosuppression [Unknown]
  - Eczema nummular [Unknown]
  - Arthralgia [Unknown]
